FAERS Safety Report 9096360 (Version 1)
Quarter: 2013Q1

REPORT INFORMATION
  Report Type: Spontaneous
  Country: US (occurrence: US)
  Receive Date: 20130207
  Receipt Date: 20130207
  Transmission Date: 20140127
  Serious: Yes (Hospitalization)
  Sender: FDA-Public Use
  Company Number: US-BAYER-2013-014336

PATIENT
  Age: 31 Year
  Sex: Female

DRUGS (4)
  1. OCELLA [Suspect]
  2. LEVAQUIN [Concomitant]
  3. CLINDAMYCIN [Concomitant]
  4. OXYCODONE [Concomitant]

REACTIONS (1)
  - Thrombophlebitis superficial [None]
